FAERS Safety Report 8194761 (Version 3)
Quarter: 2013Q1

REPORT INFORMATION
  Report Type: Spontaneous
  Country: JP (occurrence: None)
  Receive Date: 20111011
  Receipt Date: 20130219
  Transmission Date: 20140127
  Serious: Yes (Hospitalization)
  Sender: FDA-Public Use
  Company Number: JP-2011-11621

PATIENT
  Age: 43 Year
  Sex: Male
  Weight: 77.3 kg

DRUGS (18)
  1. TOLVAPTAN [Suspect]
     Indication: CONGENITAL CYSTIC KIDNEY DISEASE
     Dosage: 60 MG MILLIGRAM(S), DAILY DOSE, ORAL 90 MG MILLIGRAM(S), DAILY DOSE, ORAL 120 MG MILLIGRAM(S), DAILY
     Route: 048
     Dates: start: 20110526, end: 20110601
  2. TOLVAPTAN [Suspect]
     Dosage: 60 MG MILLIGRAM(S), DAILY DOSE, ORAL 90 MG MILLIGRAM(S), DAILY DOSE, ORAL 120 MG MILLIGRAM(S), DAILY
     Route: 048
     Dates: start: 20110526, end: 20110601
  3. DOXAZOSIN MESYLATE [Concomitant]
  4. ATELEC (CILNIDIPINE) [Concomitant]
  5. PERINDOPRIL ERBUMINE [Concomitant]
  6. ARTIST (CARVEDILOL) [Concomitant]
  7. OLMESARTAN MEDOXOMIL [Concomitant]
  8. ALLOPURINOL [Concomitant]
  9. OMEPTOROL (OMEPRAZOLE) [Concomitant]
  10. GASMOTIN (MOSAPRIDE CITRATE) [Concomitant]
  11. HALCION [Concomitant]
  12. SEDIEL (TANDOSPIRONE CITRATE) [Concomitant]
  13. ROHYPNOL (FLUNITRAZEPAM) [Concomitant]
  14. CYMBALTA [Concomitant]
  15. MIRTAZAPINE [Concomitant]
  16. LOXONIN (LOXOPROFEN SODIUM) [Concomitant]
  17. PROCATEROL HYDROCHLORIDE [Concomitant]
  18. ADOAIR (FLUTICASONE PROPIONATE, SALMETEROL XINAFOATE) [Concomitant]

REACTIONS (14)
  - RENAL CYST HAEMORRHAGE [None]
  - RENAL PAIN [None]
  - RENAL IMPAIRMENT [None]
  - Anaemia [None]
  - PYREXIA [None]
  - Depression [None]
  - VOMITING [None]
  - C-REACTIVE PROTEIN INCREASED [None]
  - RENAL CYST INFECTION [None]
  - CONCOMITANT DISEASE AGGRAVATED [None]
  - Decreased appetite [None]
  - Disease progression [None]
  - Nephrolithiasis [None]
  - Condition aggravated [None]
